FAERS Safety Report 7142386-3 (Version None)
Quarter: 2010Q4

REPORT INFORMATION
  Report Type: 
  Country: None (occurrence: None)
  Receive Date: 20101117
  Receipt Date: 20100915
  Transmission Date: 20110411
  Serious: No
  Sender: FDA-Public Use
  Company Number: WAES 1009USA03440

PATIENT
  Age: 28 Year
  Sex: Male
  Weight: 62.1428 kg

DRUGS (6)
  1. ISENTRESS [Suspect]
     Indication: HIV INFECTION
     Dosage: 400 MG/BID/PO
     Route: 048
     Dates: start: 20100628
  2. BACTRIM [Concomitant]
  3. CELEXA [Concomitant]
  4. EPZICOM [Concomitant]
  5. TRUVADA [Concomitant]
  6. ZITHROMAX [Concomitant]

REACTIONS (2)
  - NEUTROPENIA [None]
  - RASH [None]
